FAERS Safety Report 22916621 (Version 12)
Quarter: 2024Q4

REPORT INFORMATION
  Report Type: Spontaneous
  Country: CA (occurrence: CA)
  Receive Date: 20230907
  Receipt Date: 20241021
  Transmission Date: 20250115
  Serious: Yes (Hospitalization, Other)
  Sender: PFIZER
  Company Number: CA-PFIZER INC-202300063755

PATIENT
  Age: 73 Year
  Sex: Female

DRUGS (27)
  1. RUXIENCE [Suspect]
     Active Substance: RITUXIMAB-PVVR
     Indication: Sjogren^s syndrome
     Dosage: 1000 MG, DAY 1 (DAY 1 AND DAY 15) EVERY 6 MONTHS FOR 1 YEAR
     Route: 042
     Dates: start: 20230317
  2. RUXIENCE [Suspect]
     Active Substance: RITUXIMAB-PVVR
     Dosage: 1000 MG, DAY 1 (DAY 1 AND DAY 15) EVERY 6 MONTHS FOR 1 YEAR
     Route: 042
     Dates: start: 20230330
  3. RUXIENCE [Suspect]
     Active Substance: RITUXIMAB-PVVR
     Dosage: 1000 MG, DAY 1 AND DAY 15 EVERY 6 MONTHS FOR 1 YEAR (DAY 1 - RETREATMENT)
     Route: 042
     Dates: start: 20240115
  4. RUXIENCE [Suspect]
     Active Substance: RITUXIMAB-PVVR
     Dosage: 1000 MG, DAY 1 AND DAY 15 EVERY 6 MONTHS (1000 MG, 11 WEEKS)
     Route: 042
     Dates: start: 20240401
  5. RUXIENCE [Suspect]
     Active Substance: RITUXIMAB-PVVR
     Dosage: 1000 MG, ONE TREATMENT (1G, EVERY 6 MONTHS, DAY 1 AND 15)
     Route: 042
     Dates: start: 20241002
  6. RUXIENCE [Suspect]
     Active Substance: RITUXIMAB-PVVR
     Dosage: 1000 MG DAY 15 OF RETREATMENT (1 G EVERY 6 MONTH)
     Route: 042
     Dates: start: 20241016
  7. ACETAMINOPHEN [Concomitant]
     Active Substance: ACETAMINOPHEN
     Indication: Premedication
     Dosage: 50 MG
     Dates: start: 20240115, end: 20240115
  8. ACETAMINOPHEN [Concomitant]
     Active Substance: ACETAMINOPHEN
     Dosage: UNK
     Dates: start: 20240401, end: 20240401
  9. ACETAMINOPHEN [Concomitant]
     Active Substance: ACETAMINOPHEN
     Dosage: 650 MG
     Dates: start: 20241016, end: 20241016
  10. ALENDRONATE [Concomitant]
     Active Substance: ALENDRONATE SODIUM
     Dosage: UNK
  11. CALCIUM [Concomitant]
     Active Substance: CALCIUM
     Dosage: UNK
  12. DIPHENHYDRAMINE [Concomitant]
     Active Substance: DIPHENHYDRAMINE
     Indication: Premedication
     Dosage: 50 MG
     Dates: start: 20240115, end: 20240115
  13. DIPHENHYDRAMINE [Concomitant]
     Active Substance: DIPHENHYDRAMINE
     Dosage: UNK
     Dates: start: 20240401, end: 20240401
  14. DIPHENHYDRAMINE [Concomitant]
     Active Substance: DIPHENHYDRAMINE
     Dosage: 50 MG
     Dates: start: 20241016, end: 20241016
  15. DULOXETINE [Concomitant]
     Active Substance: DULOXETINE
     Dosage: UNK
  16. METHYLPREDNISOLONE [Concomitant]
     Active Substance: METHYLPREDNISOLONE
     Indication: Premedication
     Dosage: 100 MG
     Dates: start: 20240115, end: 20240115
  17. METHYLPREDNISOLONE [Concomitant]
     Active Substance: METHYLPREDNISOLONE
     Dosage: UNK
     Dates: start: 20240401, end: 20240401
  18. METHYLPREDNISOLONE [Concomitant]
     Active Substance: METHYLPREDNISOLONE
     Dosage: 100 MG
     Dates: start: 20241016, end: 20241016
  19. MYCOPHENOLIC ACID [Concomitant]
     Active Substance: MYCOPHENOLIC ACID
     Dosage: UNK
  20. MYRBETRIQ [Concomitant]
     Active Substance: MIRABEGRON
     Dosage: UNK
  21. PANTOPRAZOLE SODIUM [Concomitant]
     Active Substance: PANTOPRAZOLE SODIUM
     Dosage: UNK
  22. SALAGEN [Concomitant]
     Active Substance: PILOCARPINE HYDROCHLORIDE
     Dosage: UNK
  23. SENNOSIDES [Concomitant]
     Active Substance: SENNOSIDES
     Dosage: UNK
  24. SYNTHROID [Concomitant]
     Active Substance: LEVOTHYROXINE SODIUM
     Dosage: UNK
  25. TOPIRAMATE [Concomitant]
     Active Substance: TOPIRAMATE
     Dosage: UNK
  26. TYLENOL [Concomitant]
     Active Substance: ACETAMINOPHEN
     Indication: Premedication
     Dosage: UNK
     Dates: start: 20240401, end: 20240401
  27. CHOLECALCIFEROL [Concomitant]
     Active Substance: CHOLECALCIFEROL
     Dosage: UNK

REACTIONS (23)
  - Spinal operation [Not Recovered/Not Resolved]
  - Endometritis [Not Recovered/Not Resolved]
  - Thrombotic thrombocytopenic purpura [Not Recovered/Not Resolved]
  - Blood pressure increased [Not Recovered/Not Resolved]
  - Cellulitis [Not Recovered/Not Resolved]
  - Pain in extremity [Recovered/Resolved]
  - Burning sensation [Recovered/Resolved]
  - Pyrexia [Recovered/Resolved]
  - Headache [Recovered/Resolved]
  - Inflammation [Not Recovered/Not Resolved]
  - Limb discomfort [Not Recovered/Not Resolved]
  - Chromaturia [Not Recovered/Not Resolved]
  - Urine odour abnormal [Not Recovered/Not Resolved]
  - Chills [Recovered/Resolved]
  - Urinary tract infection [Recovered/Resolved]
  - Restless legs syndrome [Not Recovered/Not Resolved]
  - Peripheral coldness [Recovering/Resolving]
  - Blood pressure fluctuation [Unknown]
  - Body temperature decreased [Recovered/Resolved]
  - Procedural pain [Unknown]
  - Poor venous access [Unknown]
  - Injection site pain [Unknown]
  - Off label use [Unknown]

NARRATIVE: CASE EVENT DATE: 20230101
